FAERS Safety Report 12862621 (Version 1)
Quarter: 2016Q4

REPORT INFORMATION
  Report Type: Spontaneous
  Country: FR (occurrence: FR)
  Receive Date: 20161019
  Receipt Date: 20161019
  Transmission Date: 20170207
  Serious: Yes (Hospitalization)
  Sender: FDA-Public Use
  Company Number: FR-SA-2016SA189677

PATIENT
  Age: 52 Year
  Sex: Female

DRUGS (14)
  1. ACUPAN [Suspect]
     Active Substance: NEFOPAM HYDROCHLORIDE
     Route: 042
     Dates: start: 20160909, end: 20160911
  2. VIALEBEX [Suspect]
     Active Substance: ALBUMIN HUMAN
     Indication: ASCITES
     Route: 042
     Dates: start: 20160909, end: 20160909
  3. SPASFON [Suspect]
     Active Substance: PHLOROGLUCINOL
     Route: 065
     Dates: start: 20160906
  4. LOVENOX [Suspect]
     Active Substance: ENOXAPARIN SODIUM
     Route: 058
     Dates: start: 20160906
  5. INEXIUM [Suspect]
     Active Substance: ESOMEPRAZOLE
     Route: 048
     Dates: start: 20160905
  6. DIFFU K [Suspect]
     Active Substance: POTASSIUM CHLORIDE
     Route: 048
     Dates: start: 20160907
  7. LASILIX [Suspect]
     Active Substance: FUROSEMIDE
     Route: 048
     Dates: start: 20160906, end: 20160906
  8. VIALEBEX [Suspect]
     Active Substance: ALBUMIN HUMAN
     Indication: ASCITES
     Route: 042
     Dates: start: 20160909, end: 20160909
  9. TAZOCILLINE [Suspect]
     Active Substance: PIPERACILLIN SODIUM\TAZOBACTAM SODIUM
     Route: 065
     Dates: start: 20160829, end: 20160912
  10. VIALEBEX [Suspect]
     Active Substance: ALBUMIN HUMAN
     Indication: ASCITES
     Route: 042
     Dates: start: 20160909, end: 20160909
  11. FLAGYL [Suspect]
     Active Substance: METRONIDAZOLE\METRONIDAZOLE HYDROCHLORIDE
     Route: 042
     Dates: start: 20160824, end: 20160911
  12. DIFFU K [Suspect]
     Active Substance: POTASSIUM CHLORIDE
     Route: 048
  13. ALDACTONE [Suspect]
     Active Substance: SPIRONOLACTONE
     Route: 048
     Dates: start: 20160905
  14. ROCEPHINE [Suspect]
     Active Substance: CEFTRIAXONE SODIUM
     Route: 042
     Dates: start: 20160824, end: 20160828

REACTIONS (4)
  - Pruritus [Recovering/Resolving]
  - Rash morbilliform [Recovering/Resolving]
  - Rash erythematous [Recovering/Resolving]
  - Rash macular [Recovering/Resolving]

NARRATIVE: CASE EVENT DATE: 20160910
